FAERS Safety Report 11148788 (Version 1)
Quarter: 2015Q2

REPORT INFORMATION
  Report Type: Spontaneous
  Country: CN (occurrence: None)
  Receive Date: 20150527
  Receipt Date: 20150527
  Transmission Date: 20150821
  Serious: Yes (Hospitalization)
  Sender: FDA-Public Use
  Company Number: CN-DRAXIINC-000451

PATIENT
  Age: 57 Year
  Sex: Female

DRUGS (1)
  1. RADIOACTIVE IODINE I-131 (INN:SODIUM IODIDE (131 I)) [Suspect]
     Active Substance: SODIUM IODIDE I-131
     Indication: RADIOACTIVE IODINE THERAPY
     Dosage: 1 X 100 MCI/1 TOTAL

REACTIONS (10)
  - Gamma-glutamyltransferase increased [None]
  - Alanine aminotransferase increased [None]
  - Hepatotoxicity [None]
  - Aspartate aminotransferase increased [None]
  - Blood bilirubin increased [None]
  - Bilirubin conjugated increased [None]
  - Drug-induced liver injury [None]
  - Skin discolouration [None]
  - Blood alkaline phosphatase increased [None]
  - Cholestasis [None]

NARRATIVE: CASE EVENT DATE: 20141204
